FAERS Safety Report 9132259 (Version 1)
Quarter: 2013Q1

REPORT INFORMATION
  Report Type: Spontaneous
  Country: US (occurrence: US)
  Receive Date: 20130301
  Receipt Date: 20130301
  Transmission Date: 20140127
  Serious: Yes (Hospitalization, Other)
  Sender: FDA-Public Use
  Company Number: US-009507513-1202USA02284

PATIENT
  Sex: Female
  Weight: 68.39 kg

DRUGS (8)
  1. FOSAMAX [Suspect]
     Indication: OSTEOPOROSIS
     Dosage: 70 MG, QW
     Route: 048
     Dates: start: 20020913, end: 201006
  2. FOSAMAX [Suspect]
     Dosage: UNK UNK, QD
     Route: 048
     Dates: start: 2000, end: 201006
  3. FOSAMAX [Suspect]
     Dosage: 70 MG, QW
     Dates: start: 20080312
  4. TYLENOL [Concomitant]
     Indication: INSOMNIA
     Dosage: UNK UNK, PRN
  5. TYLENOL [Concomitant]
     Indication: SPINAL OSTEOARTHRITIS
  6. CALCIUM (UNSPECIFIED) (+) VITAMIN D (UNSPECIFIED) [Concomitant]
     Indication: OSTEOARTHRITIS
  7. CALCIUM (UNSPECIFIED) [Concomitant]
  8. VITAMIN D (UNSPECIFIED) [Concomitant]

REACTIONS (24)
  - Femur fracture [Recovering/Resolving]
  - Femur fracture [Recovered/Resolved]
  - Pelvic prolapse [Unknown]
  - Cystocele [Unknown]
  - Rectocele [Unknown]
  - Stress urinary incontinence [Unknown]
  - Nephrolithiasis [Unknown]
  - Fall [Unknown]
  - Cataract [Unknown]
  - Hernia [Unknown]
  - Increased tendency to bruise [Unknown]
  - Electrocardiogram PR prolongation [Unknown]
  - Foot deformity [Unknown]
  - Arthropathy [Unknown]
  - Medical device pain [Unknown]
  - Blood thyroid stimulating hormone increased [Unknown]
  - Vitamin D deficiency [Unknown]
  - Fall [Unknown]
  - Adverse event [Unknown]
  - Ankle fracture [Recovering/Resolving]
  - Fracture reduction [Unknown]
  - Internal fixation of fracture [Unknown]
  - Osteoarthritis [Unknown]
  - Insomnia [Unknown]
